FAERS Safety Report 12492696 (Version 4)
Quarter: 2016Q3

REPORT INFORMATION
  Report Type: Spontaneous
  Country: US (occurrence: US)
  Receive Date: 20160623
  Receipt Date: 20160830
  Transmission Date: 20161109
  Serious: Yes (Hospitalization, Other)
  Sender: FDA-Public Use
  Company Number: US-GILEAD-2016-0219913

PATIENT
  Age: 48 Year
  Sex: Male
  Weight: 74.7 kg

DRUGS (1)
  1. GENVOYA [Suspect]
     Active Substance: COBICISTAT\ELVITEGRAVIR\EMTRICITABINE\TENOFOVIR ALAFENAMIDE FUMARATE
     Indication: HIV INFECTION
     Dosage: 1 DF, UNK
     Route: 048
     Dates: start: 20160615, end: 20160617

REACTIONS (3)
  - Stent placement [Recovered/Resolved]
  - Myocardial infarction [Recovered/Resolved]
  - Coronary artery dissection [Recovered/Resolved]
